FAERS Safety Report 9412939 (Version 1)
Quarter: 2013Q3

REPORT INFORMATION
  Report Type: Report from Study
  Country: BR (occurrence: BR)
  Receive Date: 20130722
  Receipt Date: 20130722
  Transmission Date: 20140515
  Serious: Yes (Death, Other)
  Sender: FDA-Public Use
  Company Number: BR-ABBOTT-13P-020-1122315-00

PATIENT
  Age: 69 Year
  Sex: Female
  Weight: 63 kg

DRUGS (1)
  1. HUMIRA [Suspect]
     Indication: CROHN^S DISEASE
     Route: 058
     Dates: start: 20130223

REACTIONS (5)
  - Anaphylactic shock [Fatal]
  - Pneumonia [Fatal]
  - Sepsis [Fatal]
  - Metabolic disorder [Fatal]
  - Convulsion [Fatal]
